FAERS Safety Report 4863219-1 (Version None)
Quarter: 2005Q4

REPORT INFORMATION
  Report Type: 
  Country: None (occurrence: None)
  Receive Date: 20051219
  Receipt Date: 20051108
  Transmission Date: 20060501
  Serious: Yes (Death)
  Sender: FDA-Public Use
  Company Number: MK200512-0203-1

PATIENT
  Age: 30 Year

DRUGS (3)
  1. NALTREXONE HCL [Suspect]
     Dates: start: 20040101
  2. HEROIN [Suspect]
  3. COCAINE [Suspect]

REACTIONS (4)
  - CARDIAC ARREST [None]
  - DRUG ABUSER [None]
  - OVERDOSE [None]
  - RESPIRATORY ARREST [None]
